FAERS Safety Report 7252699-2 (Version None)
Quarter: 2011Q1

REPORT INFORMATION
  Report Type: 
  Country: None (occurrence: None)
  Receive Date: 20110129
  Receipt Date: 20100414
  Transmission Date: 20110831
  Serious: No
  Sender: FDA-Public Use
  Company Number: US-ABBOTT-10P-163-0639472-00

PATIENT
  Sex: Male

DRUGS (9)
  1. DERMA SMOOTH [Concomitant]
     Indication: PSORIASIS
     Route: 061
  2. PERCOCET [Concomitant]
     Indication: PRODUCT USED FOR UNKNOWN INDICATION
  3. LOVASTATIN [Concomitant]
     Indication: PRODUCT USED FOR UNKNOWN INDICATION
  4. FLEXERIL [Concomitant]
     Indication: PRODUCT USED FOR UNKNOWN INDICATION
  5. HUMIRA [Suspect]
     Indication: PSORIASIS
     Dates: start: 20091201, end: 20100301
  6. HUMULIN R [Concomitant]
     Indication: DIABETES MELLITUS
  7. LANTUS [Concomitant]
     Indication: DIABETES MELLITUS
  8. BETAMETHASONE [Concomitant]
     Indication: PRODUCT USED FOR UNKNOWN INDICATION
     Route: 061
  9. DOVONEX [Concomitant]
     Indication: PSORIASIS
     Route: 061

REACTIONS (4)
  - COUGH [None]
  - RHINORRHOEA [None]
  - RESPIRATORY DISORDER [None]
  - FATIGUE [None]
